FAERS Safety Report 17249698 (Version 3)
Quarter: 2020Q2

REPORT INFORMATION
  Report Type: Report from Study
  Country: US (occurrence: US)
  Receive Date: 20200108
  Receipt Date: 20200406
  Transmission Date: 20200713
  Serious: Yes (Other)
  Sender: FDA-Public Use
  Company Number: US-TAIHO ONCOLOGY  INC-EU-2019-03366

PATIENT
  Age: 80 Year
  Sex: Male

DRUGS (18)
  1. CEFADROXIL. [Concomitant]
     Active Substance: CEFADROXIL
  2. MIDODRINE [Concomitant]
     Active Substance: MIDODRINE
  3. MAG OXIDE [Concomitant]
     Active Substance: MAGNESIUM OXIDE
  4. TAMSULOSIN [Concomitant]
     Active Substance: TAMSULOSIN
  5. ZENPEP [Concomitant]
     Active Substance: PANCRELIPASE AMYLASE\PANCRELIPASE LIPASE\PANCRELIPASE PROTEASE
  6. FLUDROCORT [Concomitant]
  7. LONSURF [Suspect]
     Active Substance: TIPIRACIL HYDROCHLORIDE\TRIFLURIDINE
     Indication: COLON CANCER
     Dosage: CURRENT CYCLE UNKNOWN. LONSURF INTERRUPTED THEN RESTARTED ON 07OCT2019.
     Route: 048
     Dates: start: 20180228
  8. LONSURF [Suspect]
     Active Substance: TIPIRACIL HYDROCHLORIDE\TRIFLURIDINE
     Dosage: CURRENT CYCLE UNKNOWN.
     Route: 048
  9. NITROFURANTN [Concomitant]
     Active Substance: NITROFURANTOIN
  10. LONSURF [Suspect]
     Active Substance: TIPIRACIL HYDROCHLORIDE\TRIFLURIDINE
     Dosage: CYCLE NUMBER UNKNOWN.
     Route: 048
     Dates: start: 20171208
  11. CEPHALEXIN. [Concomitant]
     Active Substance: CEPHALEXIN
  12. DICYCLOMINE [Concomitant]
     Active Substance: DICYCLOMINE HYDROCHLORIDE
  13. HYDROMORPHON [Concomitant]
     Active Substance: HYDROMORPHONE
  14. XARELTO [Concomitant]
     Active Substance: RIVAROXABAN
  15. FLUOXETINE [Concomitant]
     Active Substance: FLUOXETINE HYDROCHLORIDE
  16. DIPHENOXYLATE/ATROPINE [Concomitant]
     Active Substance: ATROPINE\DIPHENOXYLATE
  17. OXYCONTIN [Concomitant]
     Active Substance: OXYCODONE HYDROCHLORIDE
  18. ELIQUIS [Concomitant]
     Active Substance: APIXABAN

REACTIONS (5)
  - Cytopenia [Not Recovered/Not Resolved]
  - Transfusion [Not Recovered/Not Resolved]
  - Red blood cell count decreased [Not Recovered/Not Resolved]
  - Urinary tract infection [Not Recovered/Not Resolved]
  - Disease progression [Not Recovered/Not Resolved]

NARRATIVE: CASE EVENT DATE: 20191206
